FAERS Safety Report 7010316-0 (Version None)
Quarter: 2010Q3

REPORT INFORMATION
  Report Type: 
  Country: None (occurrence: None)
  Receive Date: 20100923
  Receipt Date: 20100915
  Transmission Date: 20110219
  Serious: Yes (Hospitalization)
  Sender: FDA-Public Use
  Company Number: B0665768A

PATIENT
  Sex: Female

DRUGS (5)
  1. VALTREX [Suspect]
     Indication: HERPES ZOSTER
     Dosage: 1500MG PER DAY
     Route: 048
     Dates: start: 20090728, end: 20090803
  2. LOXOPROFEN [Concomitant]
     Indication: ANALGESIC THERAPY
     Dosage: 180MG PER DAY
     Route: 048
     Dates: start: 20090728, end: 20090810
  3. MUCOSTA [Concomitant]
     Dosage: 300MG PER DAY
     Route: 048
     Dates: start: 20090728, end: 20090810
  4. TEGRETOL [Concomitant]
     Indication: ANALGESIC THERAPY
     Dosage: 200MG PER DAY
     Route: 048
     Dates: start: 20090728, end: 20090810
  5. NSAID [Concomitant]

REACTIONS (4)
  - DRUG ERUPTION [None]
  - INFECTION [None]
  - LIVER DISORDER [None]
  - MALAISE [None]
